FAERS Safety Report 6371410-0 (Version None)
Quarter: 2009Q3

REPORT INFORMATION
  Report Type: 
  Country: None (occurrence: None)
  Receive Date: 20090923
  Receipt Date: 20071112
  Transmission Date: 20100115
  Serious: No
  Sender: FDA-Public Use
  Company Number: US-ASTRAZENECA-2007UW14876

PATIENT
  Age: 4646 Day
  Sex: Male
  Weight: 105.2 kg

DRUGS (12)
  1. SEROQUEL [Suspect]
     Indication: SLEEP DISORDER
     Route: 048
     Dates: start: 20020401
  2. SEROQUEL [Suspect]
     Dosage: DOSE 50 - 225 MG DAILY
     Route: 048
     Dates: start: 20020729
  3. RISPERDAL [Concomitant]
     Dates: start: 20020401
  4. RISPERDAL [Concomitant]
     Route: 048
     Dates: start: 20020719
  5. FLOVENT [Concomitant]
     Dosage: INHALE 2 PUFFS ORAL B.I.D.
     Dates: start: 20011121
  6. ALBUTEROL [Concomitant]
     Dosage: INHALE 2 PUFFS ORAL EVERY 4 HOURS AS REQUIRED
     Dates: start: 20050629
  7. EFFEXOR [Concomitant]
     Indication: DEPRESSION
     Dosage: 75 - 225 MG DAILY
     Dates: start: 20020719
  8. EFFEXOR [Concomitant]
     Indication: IRRITABILITY
     Dosage: 75 - 225 MG DAILY
     Dates: start: 20020719
  9. EFFEXOR [Concomitant]
     Indication: MOOD SWINGS
     Dosage: 75 - 225 MG DAILY
     Dates: start: 20020719
  10. GEODON [Concomitant]
     Indication: PSYCHOMOTOR HYPERACTIVITY
     Dosage: 10 - 60 MG DAILY
     Dates: start: 20020719
  11. GEODON [Concomitant]
     Indication: SLEEP DISORDER
     Dosage: 10 - 60 MG DAILY
     Dates: start: 20020719
  12. REMERON [Concomitant]
     Dates: start: 20020722

REACTIONS (3)
  - GLUCOSE TOLERANCE IMPAIRED [None]
  - HYPERINSULINAEMIA [None]
  - TYPE 2 DIABETES MELLITUS [None]
